FAERS Safety Report 6250374-4 (Version None)
Quarter: 2009Q2

REPORT INFORMATION
  Report Type: 
  Country: None (occurrence: None)
  Receive Date: 20090630
  Receipt Date: 20090622
  Transmission Date: 20091009
  Serious: Yes (Hospitalization)
  Sender: FDA-Public Use
  Company Number: SE-WYE-H09852609

PATIENT
  Sex: Female

DRUGS (28)
  1. RAPAMUNE [Suspect]
     Indication: PROPHYLAXIS AGAINST TRANSPLANT REJECTION
     Route: 048
     Dates: start: 20031216, end: 20031221
  2. RAPAMUNE [Suspect]
     Route: 048
     Dates: start: 20031222, end: 20031222
  3. RAPAMUNE [Suspect]
     Dates: start: 20031223, end: 20031229
  4. RAPAMUNE [Suspect]
     Route: 048
     Dates: start: 20031230, end: 20040113
  5. MYCOPHENOLATE MOFETIL [Suspect]
     Indication: PROPHYLAXIS AGAINST TRANSPLANT REJECTION
     Route: 048
     Dates: start: 20031202, end: 20031203
  6. MYCOPHENOLATE MOFETIL [Suspect]
     Dosage: 1 GRAM ONCE A DAY; THEN DOSE WAS ADJUSTED AND TAPERED DURING THE COURSE OF THE STUDY
     Route: 048
     Dates: start: 20031204, end: 20040220
  7. DACLIZUMAB [Concomitant]
     Indication: PROPHYLAXIS AGAINST TRANSPLANT REJECTION
     Route: 042
     Dates: start: 20031202, end: 20031202
  8. CYCLOSPORINE [Suspect]
     Indication: PROPHYLAXIS AGAINST TRANSPLANT REJECTION
     Route: 048
     Dates: start: 20031209, end: 20031214
  9. TACROLIMUS [Suspect]
     Indication: PROPHYLAXIS AGAINST TRANSPLANT REJECTION
     Route: 048
     Dates: start: 20040114, end: 20040101
  10. TACROLIMUS [Suspect]
     Route: 048
     Dates: start: 20040101
  11. METHYLPREDNISOLONE [Suspect]
     Indication: PROPHYLAXIS AGAINST TRANSPLANT REJECTION
     Route: 048
     Dates: start: 20031203, end: 20031203
  12. PREDNISOLONE [Suspect]
     Indication: PROPHYLAXIS AGAINST TRANSPLANT REJECTION
     Dosage: 50 MG ONCE DAILY; THEN DOSAGE WAS ADJUSTED AND TAPERED OVER THE COURSE OF THE STUDY
     Route: 048
     Dates: start: 20031204
  13. FUROSEMIDE INTENSOL [Concomitant]
     Dosage: DOSE AND FREQUENCY NOT SPECIFIED
     Route: 065
     Dates: start: 20031202
  14. VALGANCICLOVIR HCL [Concomitant]
     Dosage: DOSE AND FREQUENCY NOT SPECIFIED
     Route: 065
     Dates: start: 20031209
  15. METOPROLOL SUCCINATE [Concomitant]
     Dosage: DOSE AND FREQUENCY NOT SPECIFIED
     Route: 065
     Dates: start: 20031212
  16. ALFACALCIDOL [Concomitant]
     Dosage: DOSE AND FREQUENCY NOT SPECIFIED
     Route: 065
     Dates: start: 20031215
  17. PANTOPRAZOLE SODIUM [Concomitant]
     Dosage: DOSE AND FREQUENCY NOT SPECIFIED
     Route: 065
     Dates: start: 20031210
  18. EPOETIN ALFA [Concomitant]
     Dosage: DOSE AND FREQUENCY NOT SPECIFIED
     Route: 065
     Dates: start: 20031223
  19. REGULAR INSULIN [Concomitant]
     Dosage: DOSE AND FREQUENCY NOT SPECIFIED
     Route: 065
     Dates: start: 19730101
  20. ANTI-THYMOCYTE GLOBULIN NOS [Concomitant]
     Dosage: DOSE AND FREQUENCY NOT SPECIFIED
     Route: 065
     Dates: start: 20031203, end: 20031209
  21. AZATHIOPRINE [Concomitant]
     Dosage: DOSE AND FREQUENCY NOT SPECIFIED
     Route: 065
     Dates: start: 20040301
  22. CIPROFLOXACIN [Concomitant]
     Dosage: DOSE AND FREQUENCY NOT SPECIFIED
     Route: 065
     Dates: start: 20031207, end: 20041008
  23. IMUREL [Concomitant]
     Dosage: DOSE AND FREQUENCY NOT SPECIFIED
     Route: 065
     Dates: start: 20040220
  24. ISOSORBIDE MONONITRATE [Concomitant]
     Dosage: DOSE AND FREQUENCY NOT SPECIFIED
     Route: 065
     Dates: start: 20031222
  25. KETOBEMIDONE [Concomitant]
     Dosage: DOSE AND FREQUENCY NOT SPECIFIED
     Route: 065
     Dates: start: 20031205, end: 20040102
  26. MEROPENEM [Concomitant]
     Dosage: DOSE AND FREQUENCY NOT SPECIFIED
     Route: 065
     Dates: start: 20031204, end: 20031207
  27. METOPROLOL SUCCINATE [Concomitant]
     Dosage: DOSE AND FREQUENCY NOT SPECIFIED
     Route: 065
     Dates: start: 20031212
  28. CEFOTAXIME [Concomitant]
     Dosage: DOSE AND FREQUENCY NOT SPECIFIED
     Route: 065
     Dates: start: 20031202, end: 20031204

REACTIONS (6)
  - ABDOMINAL PAIN [None]
  - LYMPHOCELE [None]
  - MYOSITIS [None]
  - OSTEOMYELITIS [None]
  - PAIN IN EXTREMITY [None]
  - URETERIC OBSTRUCTION [None]
